FAERS Safety Report 17139796 (Version 1)
Quarter: 2019Q4

REPORT INFORMATION
  Report Type: Spontaneous
  Country: FR (occurrence: FR)
  Receive Date: 20191211
  Receipt Date: 20191211
  Transmission Date: 20200122
  Serious: Yes (Hospitalization)
  Sender: FDA-Public Use
  Company Number: FR-ZYDUS-021604

PATIENT
  Sex: Female

DRUGS (3)
  1. LOXEN (NICARDIPINE) [Suspect]
     Active Substance: NICARDIPINE
     Indication: WRONG PATIENT RECEIVED PRODUCT
     Dosage: IN TOTAL
     Route: 048
     Dates: start: 20171121, end: 20171121
  2. LOSARTAN. [Suspect]
     Active Substance: LOSARTAN
     Indication: WRONG PATIENT RECEIVED PRODUCT
     Dosage: IN TOTAL
     Route: 048
     Dates: start: 20171121, end: 20171121
  3. CELIPROLOL [Suspect]
     Active Substance: CELIPROLOL
     Indication: WRONG PATIENT RECEIVED PRODUCT
     Dosage: IN TOTAL
     Route: 048
     Dates: start: 20171121, end: 20171121

REACTIONS (2)
  - Wrong patient received product [Recovered/Resolved]
  - Hypotension [Recovered/Resolved]

NARRATIVE: CASE EVENT DATE: 20171121
